FAERS Safety Report 11055262 (Version 1)
Quarter: 2015Q2

REPORT INFORMATION
  Report Type: Spontaneous
  Country: US (occurrence: None)
  Receive Date: 20150421
  Receipt Date: 20150421
  Transmission Date: 20150821
  Serious: Yes (Other)
  Sender: FDA-Public Use
  Company Number: None

PATIENT
  Sex: Female

DRUGS (3)
  1. SILENOR [Suspect]
     Active Substance: DOXEPIN HYDROCHLORIDE
     Indication: INSOMNIA
  2. RESTORIL [Suspect]
     Active Substance: TEMAZEPAM
  3. GEN. LUNESTA [Suspect]
     Active Substance: ESZOPICLONE

REACTIONS (3)
  - Eating disorder [None]
  - Abnormal sleep-related event [None]
  - Somnambulism [None]
